FAERS Safety Report 13650747 (Version 2)
Quarter: 2017Q2

REPORT INFORMATION
  Report Type: Spontaneous
  Country: US (occurrence: US)
  Receive Date: 20170614
  Receipt Date: 20170626
  Transmission Date: 20170830
  Serious: Yes (Other)
  Sender: FDA-Public Use
  Company Number: US-ACORDA-ACO_138605_2017

PATIENT

DRUGS (1)
  1. AMPYRA [Suspect]
     Active Substance: DALFAMPRIDINE
     Indication: PRODUCT USED FOR UNKNOWN INDICATION
     Dosage: UNK
     Route: 065

REACTIONS (6)
  - Personality change [Recovered/Resolved]
  - Therapeutic response unexpected [Unknown]
  - Anger [Unknown]
  - Gait disturbance [Unknown]
  - Abasia [Recovering/Resolving]
  - Social avoidant behaviour [Unknown]
